FAERS Safety Report 21320152 (Version 1)
Quarter: 2022Q3

REPORT INFORMATION
  Report Type: Spontaneous
  Country: US (occurrence: US)
  Receive Date: 20220911
  Receipt Date: 20220911
  Transmission Date: 20221027
  Serious: No
  Sender: FDA-Public Use
  Company Number: US-SA-SAC20220908001528

PATIENT
  Sex: Female
  Weight: 61 kg

DRUGS (21)
  1. DUPIXENT [Suspect]
     Active Substance: DUPILUMAB
     Indication: Dermatitis atopic
     Dosage: 300 MG QOW
     Route: 058
  2. FLUARIX NOS [Concomitant]
     Active Substance: INFLUENZA VIRUS VACCINE
     Dosage: UNK
     Dates: start: 2021, end: 2022
  3. HYDROXYZINE HYDROCHLORIDE [Concomitant]
     Active Substance: HYDROXYZINE HYDROCHLORIDE
     Dosage: 25 MG
  4. HYDROXYZINE HYDROCHLORIDE [Concomitant]
     Active Substance: HYDROXYZINE HYDROCHLORIDE
     Dosage: 50 UNK
  5. HYDROXYZINE HYDROCHLORIDE [Concomitant]
     Active Substance: HYDROXYZINE HYDROCHLORIDE
     Dosage: 10 UNK
  6. PIMECROLIMUS [Concomitant]
     Active Substance: PIMECROLIMUS
  7. MINOCYCLINE HYDROCHLORIDE [Concomitant]
     Active Substance: MINOCYCLINE HYDROCHLORIDE
  8. DOXEPIN HCL [Concomitant]
     Active Substance: DOXEPIN HYDROCHLORIDE
     Dosage: 25 MG
  9. DOXEPIN HCL [Concomitant]
     Active Substance: DOXEPIN HYDROCHLORIDE
     Dosage: 50 UNK
  10. ELOCON [Concomitant]
     Active Substance: MOMETASONE FUROATE
  11. TEMOVATE [Concomitant]
     Active Substance: CLOBETASOL PROPIONATE
  12. HYDROCORTISONE [Concomitant]
     Active Substance: HYDROCORTISONE
  13. BETAMETHASONE DIPROPIONATE [Concomitant]
     Active Substance: BETAMETHASONE DIPROPIONATE
  14. TACROLIMUS [Concomitant]
     Active Substance: TACROLIMUS
  15. MONODOX [DOXYCYCLINE] [Concomitant]
  16. TOPICORT [Concomitant]
     Active Substance: DESOXIMETASONE
  17. TOPICORT [Concomitant]
     Active Substance: DESOXIMETASONE
  18. AVIDOXY [Concomitant]
  19. DESONIDE [Concomitant]
     Active Substance: DESONIDE
  20. KETOCONAZOLE [Concomitant]
     Active Substance: KETOCONAZOLE
  21. MODERNA COVID-19 VACCINE [Concomitant]
     Active Substance: ELASOMERAN
     Dosage: MODERNA COVID-19 BOOSTER

REACTIONS (1)
  - Illness [Unknown]
